FAERS Safety Report 8471901-2 (Version None)
Quarter: 2012Q2

REPORT INFORMATION
  Report Type: 
  Country: None (occurrence: None)
  Receive Date: 20120627
  Receipt Date: 20120613
  Transmission Date: 20120825
  Serious: No
  Sender: FDA-Public Use
  Company Number: US-B.I. PHARMACEUTICALS,INC./RIDGEFIELD-2012-BP-13985PF

PATIENT
  Sex: Female

DRUGS (5)
  1. SPIRIVA [Suspect]
  2. SYMBICORT [Concomitant]
  3. OXYGEN [Concomitant]
  4. ADVAIR DISKUS 100/50 [Concomitant]
  5. XOPENEX [Concomitant]

REACTIONS (1)
  - DYSPNOEA [None]
